FAERS Safety Report 10411807 (Version 1)
Quarter: 2014Q2

REPORT INFORMATION
  Report Type: Spontaneous
  Country: US (occurrence: None)
  Receive Date: 20140604
  Receipt Date: 20140604
  Transmission Date: 20141212
  Serious: No
  Sender: FDA-Public Use
  Company Number: 163-POMAL-14042957

PATIENT
  Age: 75 Year
  Sex: Male
  Weight: 79.38 kg

DRUGS (1)
  1. POMALYST (POMALIDOMIDE) (4 MILLIGRAM, CAPSULES) [Suspect]
     Indication: PLASMA CELL MYELOMA
     Route: 048
     Dates: start: 20140216, end: 20140309

REACTIONS (14)
  - Mental status changes [None]
  - Pollakiuria [None]
  - Impaired driving ability [None]
  - Indifference [None]
  - Contusion [None]
  - Anxiety [None]
  - Insomnia [None]
  - Epistaxis [None]
  - Dry skin [None]
  - Diarrhoea [None]
  - Decreased appetite [None]
  - Confusional state [None]
  - Fatigue [None]
  - Light chain analysis increased [None]
